FAERS Safety Report 16026023 (Version 1)
Quarter: 2019Q1

REPORT INFORMATION
  Report Type: Spontaneous
  Country: FR (occurrence: FR)
  Receive Date: 20190302
  Receipt Date: 20190302
  Transmission Date: 20190418
  Serious: Yes (Hospitalization, Other)
  Sender: FDA-Public Use
  Company Number: FR-AUROBINDO-AUR-APL-2019-009390

PATIENT

DRUGS (1)
  1. TRAMADOL. [Suspect]
     Active Substance: TRAMADOL
     Indication: HEADACHE
     Dosage: 300 MILLIGRAM
     Route: 048
     Dates: start: 2016, end: 20180313

REACTIONS (2)
  - Medication overuse headache [Not Recovered/Not Resolved]
  - Drug use disorder [Not Recovered/Not Resolved]

NARRATIVE: CASE EVENT DATE: 2016
